FAERS Safety Report 9888748 (Version 1)
Quarter: 2014Q1

REPORT INFORMATION
  Report Type: Spontaneous
  Country: US (occurrence: US)
  Receive Date: 20140211
  Receipt Date: 20140211
  Transmission Date: 20141002
  Serious: Yes (Hospitalization)
  Sender: FDA-Public Use
  Company Number: US-BRISTOL-MYERS SQUIBB COMPANY-20139374

PATIENT
  Age: 75 Year
  Sex: Male

DRUGS (5)
  1. SPRYCEL [Suspect]
     Indication: CHRONIC MYELOID LEUKAEMIA
     Dates: start: 20131121
  2. METFORMIN [Concomitant]
  3. GLYBURIDE [Concomitant]
  4. TERAZOSIN [Concomitant]
  5. FINASTERIDE [Concomitant]

REACTIONS (1)
  - Nephrolithiasis [Unknown]
